FAERS Safety Report 8811920 (Version 1)
Quarter: 2012Q4

REPORT INFORMATION
  Report Type: 
  Country: IN (occurrence: IN)
  Receive Date: 20120927
  Receipt Date: 20120927
  Transmission Date: 20130627
  Serious: Yes (Hospitalization)
  Sender: FDA-Public Use
  Company Number: IN-PFIZER INC-2012237888

PATIENT
  Age: 47 Year
  Sex: Female

DRUGS (5)
  1. LORAZEPAM [Suspect]
     Indication: INSOMNIA
     Dosage: Unk
  2. ALPRAZOLAM [Suspect]
     Indication: INSOMNIA
     Dosage: Unk
  3. ZOLPIDEM TARTRATE [Suspect]
     Indication: INSOMNIA
     Dosage: Unk
  4. CLONAZEPAM [Suspect]
     Indication: INSOMNIA
     Dosage: Unk
  5. RAMELTEON [Suspect]
     Indication: INSOMNIA
     Dosage: UNK

REACTIONS (3)
  - Intentional drug misuse [Unknown]
  - Drug ineffective [Recovered/Resolved]
  - Depression [Recovered/Resolved]
